FAERS Safety Report 5761728-4 (Version None)
Quarter: 2008Q2

REPORT INFORMATION
  Report Type: 
  Country: None (occurrence: None)
  Receive Date: 20080606
  Receipt Date: 20080527
  Transmission Date: 20081010
  Serious: Yes (Other)
  Sender: FDA-Public Use
  Company Number: CA-PFIZER INC-2008045195

PATIENT
  Age: 91 Year
  Sex: Male

DRUGS (11)
  1. DILANTIN [Suspect]
     Indication: EPILEPSY
  2. CALCIUM [Concomitant]
  3. VITAMIN D [Concomitant]
  4. CELEXA [Concomitant]
  5. BACTRIM DS [Concomitant]
  6. COLACE [Concomitant]
  7. SENOKOT [Concomitant]
  8. VITAMIN CAP [Concomitant]
  9. ASPIRIN [Concomitant]
  10. ARICEPT [Concomitant]
  11. LOXAPINE [Concomitant]

REACTIONS (1)
  - DRUG LEVEL FLUCTUATING [None]
